FAERS Safety Report 11555442 (Version 1)
Quarter: 2015Q3

REPORT INFORMATION
  Report Type: Spontaneous
  Country: US (occurrence: US)
  Receive Date: 20150925
  Receipt Date: 20150925
  Transmission Date: 20151125
  Serious: Yes (Death, Hospitalization, Other)
  Sender: FDA-Public Use
  Company Number: US-SHIRE-US201511636

PATIENT
  Age: 17 Year
  Sex: Female

DRUGS (1)
  1. VYVANSE [Suspect]
     Active Substance: LISDEXAMFETAMINE DIMESYLATE
     Indication: PRODUCT USED FOR UNKNOWN INDICATION
     Dosage: 54, DF, ONE DOSE, UNKNOWN MG CAPSULES AND FREQUENCY.
     Route: 048
     Dates: start: 20150311, end: 20150311

REACTIONS (5)
  - Cardiac arrest [Recovered/Resolved]
  - Completed suicide [Fatal]
  - Coma [Not Recovered/Not Resolved]
  - Brain death [Not Recovered/Not Resolved]
  - Intentional overdose [Fatal]

NARRATIVE: CASE EVENT DATE: 20150311
